FAERS Safety Report 16303632 (Version 1)
Quarter: 2019Q2

REPORT INFORMATION
  Report Type: Spontaneous
  Country: US (occurrence: US)
  Receive Date: 20190513
  Receipt Date: 20190513
  Transmission Date: 20190711
  Serious: Yes (Other)
  Sender: FDA-Public Use
  Company Number: US-ROCHE-2311599

PATIENT
  Sex: Female

DRUGS (3)
  1. ACETAMINOPHEN. [Concomitant]
     Active Substance: ACETAMINOPHEN
  2. MEDROL [Suspect]
     Active Substance: METHYLPREDNISOLONE
     Indication: RHEUMATOID ARTHRITIS
     Route: 065
  3. RITUXAN [Suspect]
     Active Substance: RITUXIMAB
     Indication: RHEUMATOID ARTHRITIS
     Route: 065
     Dates: start: 201712, end: 201806

REACTIONS (9)
  - Genital rash [Unknown]
  - Rash [Unknown]
  - Vision blurred [Unknown]
  - B-lymphocyte count decreased [Unknown]
  - Inflammation [Unknown]
  - Blood blister [Unknown]
  - Arrhythmia [Unknown]
  - Urticaria [Unknown]
  - Pain [Unknown]
